FAERS Safety Report 8080605-X (Version None)
Quarter: 2012Q1

REPORT INFORMATION
  Report Type: 
  Country: None (occurrence: None)
  Receive Date: 20120130
  Receipt Date: 20120119
  Transmission Date: 20120608
  Serious: Yes (Hospitalization)
  Sender: FDA-Public Use
  Company Number: AT-TEVA-319274ISR

PATIENT
  Sex: Female
  Weight: 57.6 kg

DRUGS (9)
  1. LEVOTHYROXINE SODIUM [Concomitant]
     Dosage: 75 MICROGRAM;
     Dates: start: 20100101
  2. CENIPRES (ENALAPRIL MALEATE, NITRENDIPINE) [Concomitant]
     Dosage: 10/20 MG
     Dates: start: 20100101
  3. TYHROMBO-ASS (ACETYLSALICYLIC ACID) [Concomitant]
     Dosage: 100 MILLIGRAM;
     Dates: start: 20101201
  4. PANTOPRAZOLE SODIUM [Concomitant]
     Dosage: 40 MILLIGRAM;
     Dates: start: 20110606
  5. BENDAMUSTINE HYDROCHLORIDE POWDER [Suspect]
     Dosage: 300 MILLIGRAM;
     Route: 042
     Dates: start: 20110621
  6. PASPERTIN (POLIDOCANOL) [Concomitant]
     Dosage: 20 ; GIT PAN
     Dates: start: 20110620
  7. RITUXIMAB [Suspect]
     Dosage: 300 MILLIGRAM;
     Route: 042
     Dates: start: 20110620
  8. MOVIPREP [Concomitant]
     Dosage: 3 DOSAGE FORMS; BAGS
     Dates: start: 20110701
  9. GUTTALAX [Concomitant]
     Dosage: GTT 20
     Dates: start: 20110701

REACTIONS (1)
  - VENTRICULAR EXTRASYSTOLES [None]
